FAERS Safety Report 9278780 (Version 2)
Quarter: 2013Q2

REPORT INFORMATION
  Report Type: Spontaneous
  Country: GB (occurrence: GB)
  Receive Date: 20130508
  Receipt Date: 20130521
  Transmission Date: 20140414
  Serious: Yes (Other)
  Sender: FDA-Public Use
  Company Number: GB-PFIZER INC-2013139341

PATIENT
  Age: 55 Year
  Sex: Male
  Weight: 80 kg

DRUGS (2)
  1. ATORVASTATIN [Suspect]
     Indication: HYPERCHOLESTEROLAEMIA
     Dosage: 10 MG, UNK
     Route: 048
     Dates: start: 20130227, end: 20130422
  2. CANDESARTAN [Concomitant]
     Dosage: UNK

REACTIONS (3)
  - Achilles tendon discomfort [Not Recovered/Not Resolved]
  - Tendonitis [Not Recovered/Not Resolved]
  - Swelling [Not Recovered/Not Resolved]
